FAERS Safety Report 22004789 (Version 1)
Quarter: 2023Q1

REPORT INFORMATION
  Report Type: Spontaneous
  Country: US (occurrence: None)
  Receive Date: 20230216
  Receipt Date: 20230216
  Transmission Date: 20230417
  Serious: No
  Sender: FDA-Public Use
  Company Number: None

PATIENT
  Age: 72 Year
  Sex: Male
  Weight: 93.71 kg

DRUGS (22)
  1. ABIRATERONE [Suspect]
     Active Substance: ABIRATERONE
     Indication: Prostate cancer
     Dosage: FREQUENCY : DAILY;?
     Route: 048
     Dates: start: 20221018
  2. PREDNISONE [Suspect]
     Active Substance: PREDNISONE
     Indication: Prostate cancer
     Dosage: FREQUENCY : TWICE A DAY;?
     Route: 048
     Dates: start: 20221018
  3. DOCUSATE [Concomitant]
     Active Substance: DOCUSATE
  4. ASPIRIN [Concomitant]
     Active Substance: ASPIRIN
  5. FARXIGA [Concomitant]
     Active Substance: DAPAGLIFLOZIN PROPANEDIOL
  6. FERROUS SULFATE [Concomitant]
     Active Substance: FERROUS SULFATE
  7. FUROSEMIDE [Concomitant]
     Active Substance: FUROSEMIDE
  8. GLIPIZIDE [Concomitant]
     Active Substance: GLIPIZIDE
  9. LANTUS [Concomitant]
     Active Substance: INSULIN GLARGINE
  10. LEVOTHYROXINE [Concomitant]
     Active Substance: LEVOTHYROXINE
  11. LIPITOR [Concomitant]
     Active Substance: ATORVASTATIN CALCIUM
  12. LOSARTAN [Concomitant]
     Active Substance: LOSARTAN
  13. LUPRON [Concomitant]
     Active Substance: LEUPROLIDE ACETATE
  14. METOPROLOL [Concomitant]
     Active Substance: METOPROLOL
  15. VITAMINS [Concomitant]
     Active Substance: VITAMINS
  16. NITROGLYCERIN [Concomitant]
     Active Substance: NITROGLYCERIN
  17. NORVASC [Concomitant]
     Active Substance: AMLODIPINE BESYLATE
  18. NOVOLOG [Concomitant]
     Active Substance: INSULIN ASPART
  19. OMEGA-3-ACID ETHYL ESTERS [Concomitant]
     Active Substance: OMEGA-3-ACID ETHYL ESTERS
  20. TAMSULOSIN [Concomitant]
     Active Substance: TAMSULOSIN
  21. TRULICITY [Concomitant]
     Active Substance: DULAGLUTIDE
  22. VITAMIN D3 [Concomitant]
     Active Substance: CHOLECALCIFEROL

REACTIONS (1)
  - Prostatic specific antigen increased [None]
